FAERS Safety Report 11887982 (Version 1)
Quarter: 2016Q1

REPORT INFORMATION
  Report Type: Spontaneous
  Country: US (occurrence: US)
  Receive Date: 20160105
  Receipt Date: 20160105
  Transmission Date: 20160526
  Serious: Yes (Other)
  Sender: FDA-Public Use
  Company Number: US-ENDO PHARMACEUTICALS INC.-2016-000008

PATIENT
  Sex: Female
  Weight: 54.03 kg

DRUGS (1)
  1. PREDNISONE TABLETS [Suspect]
     Active Substance: PREDNISONE
     Indication: MYALGIA
     Dosage: 4 TABLETS IN THE MORNING AND 3 TABLETS EVERY EVENING
     Route: 048

REACTIONS (2)
  - Weight decreased [Unknown]
  - Neoplasm malignant [Unknown]
